FAERS Safety Report 5280410-3 (Version None)
Quarter: 2007Q1

REPORT INFORMATION
  Report Type: 
  Country: None (occurrence: None)
  Receive Date: 20070326
  Receipt Date: 20070326
  Transmission Date: 20070707
  Serious: Yes (Other)
  Sender: FDA-Public Use
  Company Number: None

PATIENT
  Age: 25 Year
  Sex: Female
  Weight: 63.5036 kg

DRUGS (2)
  1. LEXAPRO [Suspect]
     Indication: GENERALISED ANXIETY DISORDER
     Dosage: 15MG 1 TIMES A DAY PO
     Route: 048
     Dates: start: 20050915, end: 20061001
  2. LEXAPRO [Suspect]
     Indication: PANIC ATTACK
     Dosage: 15MG 1 TIMES A DAY PO
     Route: 048
     Dates: start: 20050915, end: 20061001

REACTIONS (1)
  - ALCOHOLISM [None]
